FAERS Safety Report 9778341 (Version 2)
Quarter: 2013Q4

REPORT INFORMATION
  Report Type: Spontaneous
  Country: JP (occurrence: JP)
  Receive Date: 20131223
  Receipt Date: 20131223
  Transmission Date: 20140711
  Serious: Yes (Life-Threatening, Hospitalization)
  Sender: FDA-Public Use
  Company Number: US-ASTRAZENECA-2013SE89603

PATIENT
  Age: 74 Year
  Sex: Male

DRUGS (6)
  1. UNISIA [Suspect]
     Indication: HYPERTENSION
     Route: 048
     Dates: end: 20130901
  2. BLOPRESS [Suspect]
     Indication: HYPERTENSION
     Route: 048
     Dates: end: 20131122
  3. AMLODIN [Suspect]
     Indication: HYPERTENSION
     Route: 048
     Dates: end: 20131122
  4. MYSLEE [Suspect]
     Indication: INSOMNIA
     Route: 048
     Dates: end: 20131122
  5. AMARYL [Concomitant]
     Indication: DIABETES MELLITUS
     Route: 048
     Dates: end: 20131122
  6. LIDUC M [Concomitant]
     Indication: HYPERLIPIDAEMIA
     Route: 048
     Dates: end: 20131122

REACTIONS (1)
  - Drug-induced liver injury [Recovering/Resolving]
